FAERS Safety Report 8224314-2 (Version None)
Quarter: 2012Q1

REPORT INFORMATION
  Report Type: 
  Country: None (occurrence: None)
  Receive Date: 20120321
  Receipt Date: 20120316
  Transmission Date: 20120608
  Serious: Yes (Hospitalization)
  Sender: FDA-Public Use
  Company Number: PHHY2012JP023501

PATIENT
  Sex: Female

DRUGS (3)
  1. EXELON [Suspect]
     Indication: DEMENTIA ALZHEIMER'S TYPE
     Dosage: 4.5 MG, DAILY
     Route: 062
  2. EXELON [Suspect]
     Dosage: 9 MG, DAILY
     Route: 062
  3. EXELON [Suspect]
     Dosage: 13.5 MG, DAILY
     Route: 062

REACTIONS (2)
  - VOMITING [None]
  - ASTHMA [None]
